FAERS Safety Report 5818345-7 (Version None)
Quarter: 2008Q3

REPORT INFORMATION
  Report Type: 
  Country: None (occurrence: None)
  Receive Date: 20080716
  Receipt Date: 20080708
  Transmission Date: 20090109
  Serious: Yes (Hospitalization)
  Sender: FDA-Public Use
  Company Number: 100#03#2008-03582

PATIENT
  Age: 16 Year
  Sex: Male

DRUGS (1)
  1. ERYTHROMYCIN [Suspect]
     Indication: ACNE
     Dosage: 250 MG DAILY ORAL
     Route: 048
     Dates: start: 20071018, end: 20080101

REACTIONS (2)
  - HEADACHE [None]
  - PHOTOPHOBIA [None]
